FAERS Safety Report 10407089 (Version 1)
Quarter: 2014Q3

REPORT INFORMATION
  Report Type: Spontaneous
  Country: US (occurrence: None)
  Receive Date: 20140822
  Receipt Date: 20140822
  Transmission Date: 20150326
  Serious: Yes (Disabling)
  Sender: FDA-Public Use
  Company Number: None

PATIENT
  Age: 65 Year
  Sex: Female
  Weight: 81.65 kg

DRUGS (1)
  1. SENSODYNE FULL PROTECTION [Suspect]
     Active Substance: POTASSIUM NITRATE\SODIUM FLUORIDE
     Indication: DENTAL DISORDER PROPHYLAXIS
     Dates: start: 20140806, end: 20140810

REACTIONS (4)
  - Oral pain [None]
  - Swelling face [None]
  - Oral mucosal blistering [None]
  - Viral infection [None]

NARRATIVE: CASE EVENT DATE: 20140807
